FAERS Safety Report 9335574 (Version 2)
Quarter: 2013Q2

REPORT INFORMATION
  Report Type: Report from Study
  Country: US (occurrence: US)
  Receive Date: 20130605
  Receipt Date: 20130625
  Transmission Date: 20140414
  Serious: Yes (Hospitalization)
  Sender: FDA-Public Use
  Company Number: US-ROCHE-1230116

PATIENT
  Age: 50 Year
  Sex: Female
  Weight: 77.18 kg

DRUGS (14)
  1. BEVACIZUMAB [Suspect]
     Indication: COLORECTAL CANCER
     Dosage: MOST RECENT DOSE:22/APR/2013
     Route: 042
     Dates: start: 20120106
  2. OXALIPLATIN [Suspect]
     Indication: COLORECTAL CANCER
     Dosage: MOST RECENT DOSE:11/APR/2013
     Route: 042
     Dates: start: 20120106
  3. LEUCOVORIN [Suspect]
     Indication: COLORECTAL CANCER
     Dosage: MOST RECENT DOSE:22/APR/2013
     Route: 042
     Dates: start: 20120106
  4. FLUOROURACIL [Suspect]
     Indication: COLORECTAL CANCER
     Dosage: MOST RECENT DOSE:22/APR/2013,
     Route: 042
     Dates: start: 20120106
  5. FLUOROURACIL [Suspect]
     Dosage: MOST RECENT DOSE:22/APR/2013,
     Route: 042
     Dates: start: 20120106
  6. VERAMYST [Concomitant]
     Indication: NASAL POLYPS
     Route: 045
     Dates: start: 200906
  7. LOSARTAN POTASSIUM [Concomitant]
     Indication: HYPERTENSION
     Route: 048
     Dates: start: 20120731
  8. IBUPROFEN [Concomitant]
     Indication: ARTHRALGIA
     Route: 048
     Dates: start: 20120220
  9. IBUPROFEN [Concomitant]
     Indication: MYALGIA
  10. AMITIZA [Concomitant]
     Indication: CONSTIPATION
     Route: 048
  11. OMEPRAZOLE [Concomitant]
     Indication: DYSPHAGIA
     Route: 048
     Dates: start: 20121127
  12. SINGULAIR [Concomitant]
     Indication: SEASONAL ALLERGY
     Route: 048
     Dates: start: 200906
  13. CYMBALTA [Concomitant]
     Indication: DEPRESSION
     Route: 048
     Dates: start: 20120716
  14. PLACEBO [Suspect]
     Indication: COLORECTAL CANCER
     Dosage: MOST RECENT DOSE:22/APR/2013
     Route: 042
     Dates: start: 20120106

REACTIONS (1)
  - Sinusitis [Recovered/Resolved]
